FAERS Safety Report 18693406 (Version 1)
Quarter: 2021Q1

REPORT INFORMATION
  Report Type: Spontaneous
  Country: US (occurrence: US)
  Receive Date: 20210104
  Receipt Date: 20210104
  Transmission Date: 20210419
  Serious: No
  Sender: FDA-Public Use
  Company Number: US-GILEAD-2020-0510745

PATIENT
  Age: 66 Year
  Sex: Female

DRUGS (6)
  1. CONSTULOSE [Concomitant]
     Active Substance: LACTULOSE
  2. SOFOSBUVIR;VELPATASVIR [Suspect]
     Active Substance: SOFOSBUVIR\VELPATASVIR
     Indication: CHRONIC HEPATITIS C
     Dosage: 1 DOSAGE FORM, QD
     Route: 048
     Dates: end: 202011
  3. FUROSEMIDE. [Concomitant]
     Active Substance: FUROSEMIDE
  4. IRON [Concomitant]
     Active Substance: IRON
  5. SPIRONOLACTONE. [Concomitant]
     Active Substance: SPIRONOLACTONE
  6. PROPRANOLOL HYDROCHLORIDE. [Concomitant]
     Active Substance: PROPRANOLOL HYDROCHLORIDE

REACTIONS (3)
  - Constipation [Unknown]
  - Pruritus [Recovered/Resolved]
  - Abdominal distension [Unknown]
